FAERS Safety Report 8722276 (Version 7)
Quarter: 2013Q2

REPORT INFORMATION
  Report Type: Spontaneous
  Country: US (occurrence: US)
  Receive Date: 20120814
  Receipt Date: 20130515
  Transmission Date: 20140414
  Serious: Yes (Hospitalization, Other)
  Sender: FDA-Public Use
  Company Number: US-MERCK-1208USA001528

PATIENT
  Sex: Female
  Weight: 70.3 kg

DRUGS (11)
  1. FOSAMAX [Suspect]
     Indication: OSTEOPOROSIS
     Dosage: 70 MG, UNK
     Route: 048
     Dates: start: 20090113
  2. FOSAMAX [Suspect]
     Indication: OSTEOPENIA
  3. ALENDRONATE SODIUM [Suspect]
     Indication: OSTEOPOROSIS
     Dosage: 70 MG, UNK
     Route: 048
     Dates: start: 20090113, end: 20100414
  4. ALENDRONATE SODIUM [Suspect]
     Indication: OSTEOPENIA
  5. ACTONEL [Suspect]
     Indication: OSTEOPOROSIS
     Dosage: 35 MG, UNK
     Route: 048
     Dates: start: 20030604, end: 20090113
  6. ACTONEL [Suspect]
     Indication: OSTEOPENIA
  7. AGGRENOX [Concomitant]
     Dosage: UNK
     Dates: start: 2003
  8. DETROL LA [Concomitant]
     Indication: URINARY INCONTINENCE
     Dosage: UNK
     Dates: start: 2003, end: 2010
  9. LEVOTHYROXINE SODIUM [Concomitant]
     Indication: THYROID DISORDER
     Dosage: UNK
     Dates: start: 2008
  10. ZOCOR [Concomitant]
     Indication: HYPERLIPIDAEMIA
     Dosage: UNK
     Route: 048
  11. VITAMINS (UNSPECIFIED) [Concomitant]
     Dosage: 500 MG, QD
     Dates: start: 1992

REACTIONS (3)
  - Open reduction of fracture [Unknown]
  - Femur fracture [Recovered/Resolved]
  - Low turnover osteopathy [Unknown]
